FAERS Safety Report 9026133 (Version 2)
Quarter: 2013Q1

REPORT INFORMATION
  Report Type: Spontaneous
  Country: US (occurrence: None)
  Receive Date: 20130108
  Receipt Date: 20130205
  Transmission Date: 20140127
  Serious: Yes (Hospitalization, Other)
  Sender: FDA-Public Use
  Company Number: 2012P1068344

PATIENT
  Age: 71 Year
  Sex: Female

DRUGS (2)
  1. INFUMORPH [Suspect]
     Indication: PAIN
  2. INFUMORPH [Suspect]
     Indication: POST LAMINECTOMY SYNDROME

REACTIONS (21)
  - Unresponsive to stimuli [None]
  - Respiratory disorder [None]
  - Overdose [None]
  - Injury [None]
  - Drug dispensing error [None]
  - Urinary tract infection [None]
  - Hypotension [None]
  - Acute respiratory failure [None]
  - Bradycardia [None]
  - Metabolic acidosis [None]
  - Renal failure acute [None]
  - Rhabdomyolysis [None]
  - Decubitus ulcer [None]
  - Enterococcus test positive [None]
  - Sepsis [None]
  - Pneumonia [None]
  - Hypertension [None]
  - Metabolic encephalopathy [None]
  - Toxic encephalopathy [None]
  - Electrocardiogram abnormal [None]
  - Cystitis [None]
